FAERS Safety Report 5028204-8 (Version None)
Quarter: 2006Q2

REPORT INFORMATION
  Report Type: 
  Country: None (occurrence: None)
  Receive Date: 20060613
  Receipt Date: 20060602
  Transmission Date: 20061013
  Serious: Yes (Hospitalization)
  Sender: FDA-Public Use
  Company Number: 2006071801

PATIENT
  Age: 69 Year
  Sex: Female
  Weight: 72.5755 kg

DRUGS (10)
  1. LIPITOR [Suspect]
     Indication: BLOOD CHOLESTEROL
     Dosage: 20 MG (20 MG, 1 IN 1 D), ORAL
     Route: 048
     Dates: start: 19980101, end: 20060401
  2. CALAN [Concomitant]
  3. ALL OTHER THERAPEUTIC PRODUCTS (ALL OTHER THERAPEUTIC PRODUCTS) [Concomitant]
  4. COUMADIN [Concomitant]
  5. REMERON [Concomitant]
  6. ALLERGY MEDICATION (ALLERGY MEDICATION) [Concomitant]
  7. PULMICORT [Concomitant]
  8. RHINOCORT [Concomitant]
  9. DETROL LA [Concomitant]
  10. LASIX (FUREOSEMIDE) [Concomitant]

REACTIONS (3)
  - BLADDER DISORDER [None]
  - JOINT SWELLING [None]
  - PAIN IN EXTREMITY [None]
